FAERS Safety Report 5468271-0 (Version None)
Quarter: 2007Q3

REPORT INFORMATION
  Report Type: 
  Country: None (occurrence: None)
  Receive Date: 20070926
  Receipt Date: 20070917
  Transmission Date: 20080115
  Serious: No
  Sender: FDA-Public Use
  Company Number: FR-AVENTIS-200613262FR

PATIENT
  Age: 43 Year
  Sex: Male

DRUGS (3)
  1. ARAVA [Suspect]
     Indication: RHEUMATOID ARTHRITIS
     Route: 048
     Dates: start: 20010101
  2. HUMIRA [Concomitant]
     Indication: RHEUMATOID ARTHRITIS
     Route: 058
     Dates: start: 20050101
  3. CORTANCYL [Concomitant]
     Route: 048
     Dates: start: 19950101

REACTIONS (2)
  - NO ADVERSE DRUG REACTION [None]
  - TRANSMISSION OF DRUG VIA SEMEN [None]
